FAERS Safety Report 5081545-0 (Version None)
Quarter: 2006Q3

REPORT INFORMATION
  Report Type: 
  Country: None (occurrence: None)
  Receive Date: 20060811
  Receipt Date: 20060728
  Transmission Date: 20061208
  Serious: Yes (Other)
  Sender: FDA-Public Use
  Company Number: 2006S1006064

PATIENT
  Age: 56 Year
  Sex: Female
  Weight: 83.9154 kg

DRUGS (3)
  1. LISINOPRIL TABLET, USP (20 MG) [Suspect]
     Indication: HYPERTENSION
     Dosage: 20 MG;QD;PO
     Route: 048
     Dates: start: 20051201
  2. LANSOPRAZOLE [Concomitant]
  3. HYDROCHLOROTHIAZIDE [Concomitant]

REACTIONS (2)
  - OTOSCLEROSIS [None]
  - TINNITUS [None]
